FAERS Safety Report 23735563 (Version 2)
Quarter: 2024Q2

REPORT INFORMATION
  Report Type: Spontaneous
  Country: AU (occurrence: AU)
  Receive Date: 20240412
  Receipt Date: 20240621
  Transmission Date: 20240717
  Serious: Yes (Other)
  Sender: FDA-Public Use
  Company Number: AU-BAYER-2024A050491

PATIENT
  Age: 85 Year
  Sex: Female

DRUGS (1)
  1. GADOBUTROL [Suspect]
     Active Substance: GADOBUTROL
     Indication: Spinal myelogram
     Dosage: 8 ML, ONCE

REACTIONS (3)
  - Contrast encephalopathy [Not Recovered/Not Resolved]
  - Status epilepticus [Not Recovered/Not Resolved]
  - Off label use [None]
